FAERS Safety Report 8963093 (Version 3)
Quarter: 2013Q1

REPORT INFORMATION
  Report Type: Spontaneous
  Country: US (occurrence: US)
  Receive Date: 20121213
  Receipt Date: 20130325
  Transmission Date: 20140127
  Serious: Yes (Other)
  Sender: FDA-Public Use
  Company Number: US-PFIZER INC-2012314978

PATIENT
  Age: 57 Year
  Sex: Female
  Weight: 83.9 kg

DRUGS (22)
  1. LYRICA [Suspect]
     Indication: NEURALGIA
     Dosage: 100 MG, DAILY
     Route: 048
     Dates: start: 20100811
  2. LYRICA [Suspect]
     Indication: BRACHIAL PLEXOPATHY
     Dosage: 75 MG, 2X/DAY
     Route: 048
  3. LYRICA [Suspect]
     Dosage: 1 DF, (ONLY TOOK 1 DOSE OF 150)
     Route: 048
     Dates: start: 2010, end: 2010
  4. LYRICA [Suspect]
     Dosage: 75 MG, 1X/DAY
     Dates: start: 20121219
  5. ADDERALL XR [Concomitant]
     Indication: BRAIN INJURY
     Dosage: 60 MG, DAILY IN THE MORNING
  6. NORCO [Concomitant]
     Indication: BREAKTHROUGH PAIN
     Dosage: 5MG /325MG, EVERY 6 HOURS AS NEEDED
     Route: 048
  7. NORCO [Concomitant]
     Indication: PAIN
  8. OXYCODONE HYDROCHLORIDE [Concomitant]
     Indication: PAIN
     Dosage: 40 MG, UNK
  9. OXYCODONE HYDROCHLORIDE [Concomitant]
     Dosage: 15 MG, 2X/DAY
  10. BETHANECHOL [Concomitant]
     Indication: NEUROGENIC BLADDER
     Dosage: 25 MG, 3X/DAY
  11. DIAZEPAM [Concomitant]
     Indication: POST-TRAUMATIC STRESS DISORDER
     Dosage: 5 MG, DAILY AT BED TIME
     Route: 048
  12. CITALOPRAM [Concomitant]
     Indication: DEPRESSION
     Dosage: 10 MG, DAILY
  13. ADVAIR DISKUS [Concomitant]
     Dosage: 100/50MCG, 2X/DAY (MORNING AND EVENING APPROXIMATELY 12 HOURS APART)
     Route: 055
  14. ALBUTEROL SULFATE [Concomitant]
     Dosage: 90 UG, 2 PUFF EVERY 4 - 6 HOURS AS NEEDED
     Route: 055
  15. CITALOPRAM HYDROBROMIDE [Concomitant]
     Dosage: 10 MG, 1X/DAY
     Route: 048
  16. MELOXICAM [Concomitant]
     Dosage: 15 MG, 1X/DAY
     Route: 048
  17. CALCIUM CARBONATE/VITAMIN D3 [Concomitant]
     Dosage: 1.250 MG/ 400 UNIT, 2X/DAY
     Route: 048
  18. LIDOCAINE/PRILOCAINE [Concomitant]
     Indication: PAIN
     Dosage: 2.5%- 2.5% (5G EVERY 6 HOURS AS NEEDED)
  19. ACTONEL [Concomitant]
     Dosage: 150 MG, MONTHLY
     Route: 048
  20. EPIPEN [Concomitant]
     Dosage: 0.3 MG/ 0.3 ML (1:1,000) AS DIRECTED
  21. DUONEB [Concomitant]
     Dosage: 0.5 MG-3MG (2.5 MG BASE)/ 3 ML, 4X/DAY
     Route: 055
  22. CYCLOBENZAPRINE [Concomitant]
     Dosage: (CYCLOBENZAPRINE 10)

REACTIONS (6)
  - Weight increased [Unknown]
  - Hypoaesthesia [Recovered/Resolved]
  - Fall [Unknown]
  - Asthenia [Recovered/Resolved]
  - Gait disturbance [Unknown]
  - Activities of daily living impaired [Unknown]
